FAERS Safety Report 4388421-7 (Version None)
Quarter: 2004Q2

REPORT INFORMATION
  Report Type: 
  Country: None (occurrence: None)
  Receive Date: 20040625
  Receipt Date: 20040614
  Transmission Date: 20050107
  Serious: Yes (Hospitalization, Other)
  Sender: FDA-Public Use
  Company Number: HQWYE446214JUN04

PATIENT
  Age: 20 Year
  Sex: Female

DRUGS (7)
  1. EUPANTOL (PANTOPRAZOLE, INJECTION) [Suspect]
     Dosage: INTRAVENOUS
     Route: 042
     Dates: start: 20040514, end: 20040517
  2. OMEPRAZOLE [Suspect]
     Dosage: 40 MG, INTRAVENOUS
     Route: 042
     Dates: start: 20040420, end: 20040514
  3. DEBRIDAT (TRIMEBUTINE MALEATE) [Concomitant]
  4. SPASFON (PHLOROGLUCINOL/TRIMETHYLPHLOROGLUCINOL) [Concomitant]
  5. CIPROFLOXACIN [Concomitant]
  6. FLAGYL [Concomitant]
  7. AZATHIOPRINE [Concomitant]

REACTIONS (4)
  - AGRANULOCYTOSIS [None]
  - FOLATE DEFICIENCY [None]
  - MEGALOBLASTS INCREASED [None]
  - NEUTROPENIA [None]
